FAERS Safety Report 7866041-7 (Version None)
Quarter: 2011Q4

REPORT INFORMATION
  Report Type: 
  Country: None (occurrence: None)
  Receive Date: 20111028
  Receipt Date: 20110413
  Transmission Date: 20120403
  Serious: Yes (Other)
  Sender: FDA-Public Use
  Company Number: US-GLAXOSMITHKLINE-A0922849A

PATIENT
  Age: 83 Year
  Sex: Female

DRUGS (2)
  1. NIFEDIPINE [Concomitant]
  2. ADVAIR DISKUS 100/50 [Suspect]
     Indication: ASTHMA
     Dosage: 1PUFF AT NIGHT
     Route: 055
     Dates: start: 20050101

REACTIONS (4)
  - RASH [None]
  - PRURITUS [None]
  - PYREXIA [None]
  - PNEUMONIA [None]
